FAERS Safety Report 24630661 (Version 1)
Quarter: 2024Q4

REPORT INFORMATION
  Report Type: Spontaneous
  Country: US (occurrence: None)
  Receive Date: 20241116
  Receipt Date: 20241116
  Transmission Date: 20250114
  Serious: Yes (Hospitalization)
  Sender: Public
  Company Number: None

PATIENT
  Sex: Female

DRUGS (4)
  1. ACTEMRA [Suspect]
     Active Substance: TOCILIZUMAB
     Indication: Rheumatoid arthritis
     Dosage: FREQ: INJECT 1 PEN UNDER THE SKIN (SUBCUTANEOUS INJECTION) EVERY WEEK FOR GIANT CELL ARTERITIS FOR R
     Route: 058
  2. LOSARTAN POT [Concomitant]
  3. PREDNISONE [Concomitant]
     Active Substance: PREDNISONE
  4. PROLIA [Concomitant]
     Active Substance: DENOSUMAB

REACTIONS (3)
  - Intentional dose omission [None]
  - Loss of personal independence in daily activities [None]
  - Drug ineffective [None]
